FAERS Safety Report 6212089-8 (Version None)
Quarter: 2009Q2

REPORT INFORMATION
  Report Type: 
  Country: None (occurrence: None)
  Receive Date: 20090602
  Receipt Date: 20090520
  Transmission Date: 20091009
  Serious: Yes (Death, Hospitalization, Other)
  Sender: FDA-Public Use
  Company Number: PHHY2009JP20283

PATIENT
  Sex: Female

DRUGS (19)
  1. DIOVAN T30230+TAB+HY [Suspect]
     Dosage: 40 MG, QD
     Route: 048
     Dates: start: 20071124, end: 20071203
  2. DIOVAN T30230+TAB+HY [Suspect]
     Dosage: 40 MG, BID
     Route: 048
     Dates: start: 20071203, end: 20071221
  3. DIOVAN T30230+TAB+HY [Suspect]
     Dosage: 60 MG, BID
     Route: 048
     Dates: start: 20071221, end: 20071228
  4. DIOVAN T30230+TAB+HY [Suspect]
     Dosage: 80 MG, BID
     Route: 048
     Dates: start: 20071228, end: 20080709
  5. NIFE - SLOW RELEASE [Concomitant]
     Indication: HYPERTENSION
     Dosage: 20 MG, UNK
     Route: 048
     Dates: start: 20040201, end: 20080709
  6. INHIBACE [Concomitant]
     Indication: HYPERTENSION
     Dosage: 2 MG, UNK
     Route: 048
     Dates: start: 20040201, end: 20080709
  7. NITOROL [Concomitant]
     Indication: HYPERTENSION
     Dosage: 40 MG, UNK
     Route: 048
     Dates: start: 20040201, end: 20080709
  8. BLOPRESS [Concomitant]
     Indication: HYPERTENSION
     Dosage: 8 MG
     Route: 048
     Dates: start: 20040201, end: 20080709
  9. ARTIST [Concomitant]
     Indication: HYPERTENSION
     Dosage: 10 MG
     Route: 048
     Dates: start: 20040201, end: 20080709
  10. SELOKEN [Concomitant]
     Indication: HYPERTENSION
     Dosage: 60 MG
     Route: 048
     Dates: start: 20080121, end: 20080709
  11. EPLERENONE [Concomitant]
     Indication: HYPERTENSION
     Dosage: UNK
     Dates: start: 20080204, end: 20080709
  12. RIZE [Concomitant]
     Dosage: 10 MG, UNK
     Route: 048
     Dates: start: 20040201, end: 20080709
  13. LASIX [Concomitant]
     Dosage: UNK
     Route: 048
     Dates: start: 20040201, end: 20080709
  14. SELBEX [Concomitant]
     Dosage: 1.5 MG, UNK
     Route: 048
     Dates: start: 20040201, end: 20080709
  15. SENNOSIDE [Concomitant]
     Dosage: UNK
     Route: 048
     Dates: start: 20040201, end: 20080709
  16. AMOBAN [Concomitant]
     Dosage: UNK
     Route: 048
     Dates: start: 20040201, end: 20080709
  17. DEPAS [Concomitant]
     Dosage: 0.5 MG, UNK
     Route: 048
     Dates: start: 20040201, end: 20080709
  18. FLAVOSERT [Concomitant]
     Dosage: UNK
     Route: 048
     Dates: start: 20040201, end: 20080709
  19. CINALONG [Concomitant]
     Dosage: UNK
     Route: 048
     Dates: start: 20040201, end: 20080709

REACTIONS (7)
  - ANAEMIA [None]
  - BLOOD POTASSIUM DECREASED [None]
  - BLOOD UREA INCREASED [None]
  - CEREBRAL INFARCTION [None]
  - HYPOPHAGIA [None]
  - PLATELET COUNT DECREASED [None]
  - PNEUMONIA ASPIRATION [None]
